FAERS Safety Report 21040171 (Version 5)
Quarter: 2022Q4

REPORT INFORMATION
  Report Type: Report from Study
  Country: US (occurrence: US)
  Receive Date: 20220704
  Receipt Date: 20221219
  Transmission Date: 20230113
  Serious: No
  Sender: FDA-Public Use
  Company Number: US-NOVARTISTESTPH-NVSC2022US151528

PATIENT
  Age: 4 Year
  Sex: Female

DRUGS (1)
  1. VIJOICE [Suspect]
     Active Substance: ALPELISIB
     Indication: PIK3CA related overgrowth spectrum
     Dosage: 50 MG, QD (LATEST ADMINISTRATION- 12 DEC 2022)
     Route: 048
     Dates: start: 202202

REACTIONS (8)
  - Oral pain [Recovered/Resolved]
  - COVID-19 [Unknown]
  - Eczema [Unknown]
  - Headache [Unknown]
  - Alopecia [Unknown]
  - Dry skin [Unknown]
  - Product solubility abnormal [Unknown]
  - Weight increased [Unknown]

NARRATIVE: CASE EVENT DATE: 20220619
